FAERS Safety Report 8014911-1 (Version None)
Quarter: 2011Q4

REPORT INFORMATION
  Report Type: 
  Country: None (occurrence: None)
  Receive Date: 20111229
  Receipt Date: 20111218
  Transmission Date: 20120403
  Serious: Yes (Other)
  Sender: FDA-Public Use
  Company Number: CN-BAUSCH-2011BL009048

PATIENT
  Age: 67 Year
  Sex: Female

DRUGS (4)
  1. GENTAMICIN [Suspect]
     Indication: ENDOPHTHALMITIS
     Route: 047
  2. VANCOMYCIN [Suspect]
     Indication: ENDOPHTHALMITIS
     Route: 047
  3. CIPROFLOXACIN [Concomitant]
  4. CIPROFLOXACIN [Suspect]
     Indication: ENDOPHTHALMITIS
     Route: 048

REACTIONS (1)
  - RENAL FAILURE ACUTE [None]
